FAERS Safety Report 8552480-8 (Version None)
Quarter: 2012Q3

REPORT INFORMATION
  Report Type: 
  Country: None (occurrence: None)
  Receive Date: 20120731
  Receipt Date: 20120719
  Transmission Date: 20120928
  Serious: Yes (Life-Threatening, Hospitalization, Disabling)
  Sender: FDA-Public Use
  Company Number: US-BAYER-2012-057339

PATIENT
  Sex: Female

DRUGS (15)
  1. NORCO [Concomitant]
  2. SYNTHROID [Concomitant]
  3. ZOLOFT [Concomitant]
     Indication: DEPRESSION
  4. YAZ [Suspect]
  5. TOPAMAX [Concomitant]
  6. YASMIN [Suspect]
  7. TRICOR [Concomitant]
  8. ULTRAM [Concomitant]
  9. ZELNORM [Concomitant]
  10. AMBIEN [Concomitant]
  11. ANTIHISTAMINES [Concomitant]
  12. DROSPIRENONE AND ETHINYL ESTRADIOL [Suspect]
  13. LIPITOR [Concomitant]
  14. PLENDIL [Concomitant]
  15. TOPROL-XL [Concomitant]

REACTIONS (8)
  - DEEP VEIN THROMBOSIS [None]
  - ANHEDONIA [None]
  - PULMONARY EMBOLISM [None]
  - EMOTIONAL DISTRESS [None]
  - PAIN [None]
  - INJURY [None]
  - GENERAL PHYSICAL HEALTH DETERIORATION [None]
  - ANXIETY [None]
